FAERS Safety Report 6623683-4 (Version None)
Quarter: 2010Q1

REPORT INFORMATION
  Report Type: 
  Country: None (occurrence: None)
  Receive Date: 20100310
  Receipt Date: 20091113
  Transmission Date: 20100710
  Serious: No
  Sender: FDA-Public Use
  Company Number: US-BIOGENIDEC-2009BI036870

PATIENT
  Sex: Male

DRUGS (4)
  1. AVONEX [Suspect]
     Indication: MULTIPLE SCLEROSIS
     Route: 030
     Dates: start: 20081230
  2. AVONEX [Suspect]
     Route: 030
     Dates: start: 20090101
  3. AVONEX [Suspect]
     Route: 030
     Dates: start: 20090101
  4. AVONEX [Suspect]
     Route: 030
     Dates: start: 20090101

REACTIONS (10)
  - AMNESIA [None]
  - ANXIETY [None]
  - BALANCE DISORDER [None]
  - DEPRESSION [None]
  - GAIT DISTURBANCE [None]
  - INFLUENZA LIKE ILLNESS [None]
  - MUSCLE SPASMS [None]
  - PARAESTHESIA [None]
  - TEMPERATURE INTOLERANCE [None]
  - VOMITING [None]
